FAERS Safety Report 4431049-0 (Version None)
Quarter: 2004Q3

REPORT INFORMATION
  Report Type: 
  Country: None (occurrence: None)
  Receive Date: 20040824
  Receipt Date: 20040428
  Transmission Date: 20050211
  Serious: No
  Sender: FDA-Public Use
  Company Number: US-BRISTOL-MYERS SQUIBB COMPANY-12574083

PATIENT
  Age: 86 Year
  Sex: Male
  Weight: 73 kg

DRUGS (1)
  1. MUCOMYST [Suspect]
     Dosage: 4 CC
     Route: 055
     Dates: start: 20040425

REACTIONS (1)
  - DRUG INEFFECTIVE [None]
